FAERS Safety Report 11369878 (Version 1)
Quarter: 2015Q3

REPORT INFORMATION
  Report Type: Spontaneous
  Country: US (occurrence: US)
  Receive Date: 20150812
  Receipt Date: 20150812
  Transmission Date: 20151125
  Serious: Yes (Other)
  Sender: FDA-Public Use
  Company Number: US-JNJFOC-20150704069

PATIENT

DRUGS (8)
  1. BORTEZOMIB [Suspect]
     Active Substance: BORTEZOMIB
     Indication: NEUROBLASTOMA
     Route: 065
  2. DOXORUBICIN HYDROCHLORIDE. [Suspect]
     Active Substance: DOXORUBICIN HYDROCHLORIDE
     Indication: NEUROBLASTOMA RECURRENT
     Route: 042
  3. DOXORUBICIN HYDROCHLORIDE. [Suspect]
     Active Substance: DOXORUBICIN HYDROCHLORIDE
     Indication: NEUROBLASTOMA
     Route: 042
  4. VORINOSTAT [Suspect]
     Active Substance: VORINOSTAT
     Indication: NEUROBLASTOMA
     Route: 065
  5. SIMVASTIN [Suspect]
     Active Substance: SIMVASTATIN
     Indication: NEUROBLASTOMA
     Route: 065
  6. VORINOSTAT [Suspect]
     Active Substance: VORINOSTAT
     Indication: NEUROBLASTOMA RECURRENT
     Route: 065
  7. BORTEZOMIB [Suspect]
     Active Substance: BORTEZOMIB
     Indication: NEUROBLASTOMA RECURRENT
     Route: 065
  8. SIMVASTIN [Suspect]
     Active Substance: SIMVASTATIN
     Indication: NEUROBLASTOMA RECURRENT
     Route: 065

REACTIONS (7)
  - Anaemia [Unknown]
  - Thrombocytopenia [Unknown]
  - Product use issue [Unknown]
  - Neutropenia [Unknown]
  - Abdominal pain [Unknown]
  - Myalgia [Unknown]
  - Leukopenia [Unknown]
